FAERS Safety Report 25160264 (Version 1)
Quarter: 2025Q2

REPORT INFORMATION
  Report Type: Spontaneous
  Country: US (occurrence: US)
  Receive Date: 20250404
  Receipt Date: 20250404
  Transmission Date: 20250716
  Serious: Yes (Hospitalization, Other)
  Sender: RANBAXY
  Company Number: US-SUN PHARMACEUTICAL INDUSTRIES LTD-2025R1-501873

PATIENT
  Age: 22 Year
  Sex: Female

DRUGS (1)
  1. DOXORUBICIN [Suspect]
     Active Substance: DOXORUBICIN
     Indication: Osteosarcoma
     Route: 065

REACTIONS (4)
  - Peripheral ischaemia [Unknown]
  - Exposure during pregnancy [Unknown]
  - Cardiomyopathy [Unknown]
  - Cardiac failure acute [Unknown]
